FAERS Safety Report 6733190-6 (Version None)
Quarter: 2010Q2

REPORT INFORMATION
  Report Type: 
  Country: None (occurrence: None)
  Receive Date: 20100520
  Receipt Date: 20100510
  Transmission Date: 20101027
  Serious: No
  Sender: FDA-Public Use
  Company Number: US-BIOGENIDEC-2010BI015697

PATIENT
  Age: 33 Year
  Sex: Female

DRUGS (4)
  1. TYSABRI [Suspect]
     Indication: MULTIPLE SCLEROSIS
     Route: 042
     Dates: start: 20070531, end: 20090101
  2. TYSABRI [Suspect]
     Route: 042
     Dates: start: 20091001, end: 20100101
  3. TYSABRI [Suspect]
     Route: 042
     Dates: start: 20100302
  4. AVONEX [Concomitant]
     Indication: MULTIPLE SCLEROSIS
     Route: 030

REACTIONS (3)
  - DYSPHAGIA [None]
  - FATIGUE [None]
  - MENORRHAGIA [None]
